FAERS Safety Report 17078290 (Version 2)
Quarter: 2020Q1

REPORT INFORMATION
  Report Type: Spontaneous
  Country: GR (occurrence: GR)
  Receive Date: 20191126
  Receipt Date: 20200313
  Transmission Date: 20200409
  Serious: Yes (Death, Hospitalization)
  Sender: FDA-Public Use
  Company Number: GR-BIOGEN-2019BI00810510

PATIENT
  Age: 13 Month
  Sex: Male

DRUGS (1)
  1. SPINRAZA [Suspect]
     Active Substance: NUSINERSEN
     Indication: SPINAL MUSCULAR ATROPHY
     Route: 065
     Dates: start: 20180726, end: 20191115

REACTIONS (6)
  - Off label use [Unknown]
  - Respiratory arrest [Fatal]
  - Hepatic failure [Fatal]
  - Shock [Fatal]
  - Respiratory disorder [Fatal]
  - Pulmonary haemorrhage [Fatal]
